FAERS Safety Report 8468851-4 (Version None)
Quarter: 2012Q2

REPORT INFORMATION
  Report Type: 
  Country: None (occurrence: None)
  Receive Date: 20120619
  Receipt Date: 20120604
  Transmission Date: 20120825
  Serious: Yes (Hospitalization)
  Sender: FDA-Public Use
  Company Number: JPI-P-021821

PATIENT
  Age: 3 Year
  Sex: Male
  Weight: 13.6079 kg

DRUGS (1)
  1. XYREM (500 MILLIGRAM/MILLILITERS, SOLUTION)(SODIUM OXYBATE) [Suspect]
     Indication: ACCIDENTAL EXPOSURE
     Dosage: (APPROXIMATELY HALF OF 2.25 GM DOSE),ORAL
     Route: 048
     Dates: start: 20120603, end: 20120603

REACTIONS (2)
  - LETHARGY [None]
  - ACCIDENTAL DRUG INTAKE BY CHILD [None]
